FAERS Safety Report 19968915 (Version 1)
Quarter: 2021Q4

REPORT INFORMATION
  Report Type: Spontaneous
  Country: NL (occurrence: NL)
  Receive Date: 20211019
  Receipt Date: 20211019
  Transmission Date: 20220304
  Serious: Yes (Other)
  Sender: FDA-Public Use
  Company Number: None

PATIENT
  Sex: Female
  Weight: 100 kg

DRUGS (6)
  1. AMLODIPINE [Suspect]
     Active Substance: AMLODIPINE BESYLATE
     Indication: Hypertension
     Dosage: 1 X PER DAY 1 PIECE
     Dates: start: 20210526, end: 20210528
  2. MEBEVERINE [Concomitant]
     Active Substance: MEBEVERINE
     Dosage: MODIFIED-RELEASE CAPSULE, 200 MG (MILLIGRAMS)
  3. CHOLECALCIFEROL [Concomitant]
     Active Substance: CHOLECALCIFEROL
     Dosage: CAPSULE, 5600 UNITS
  4. ESOMEPRAZOLE [Concomitant]
     Active Substance: ESOMEPRAZOLE
     Dosage: 40 MILLIGRAM
  5. LOSARTAN [Concomitant]
     Active Substance: LOSARTAN
     Dosage: FILM-COATED TABLET, 100 MG (MILLIGRAMS)
  6. MAGNESIUM [Concomitant]
     Active Substance: MAGNESIUM
     Dosage: KAUWTABLET, 724 MG (MILLIGRAM)

REACTIONS (4)
  - Chest discomfort [Recovered/Resolved]
  - Restlessness [Recovered/Resolved]
  - Dysarthria [Recovered/Resolved]
  - Headache [Recovered/Resolved]
